FAERS Safety Report 11422385 (Version 1)
Quarter: 2015Q3

REPORT INFORMATION
  Report Type: Spontaneous
  Country: US (occurrence: None)
  Receive Date: 20150826
  Receipt Date: 20150826
  Transmission Date: 20151125
  Serious: No
  Sender: FDA-Public Use
  Company Number: None

PATIENT
  Age: 23 Year
  Sex: Male

DRUGS (1)
  1. RIBASPHERE [Suspect]
     Active Substance: RIBAVIRIN
     Dates: start: 20150502

REACTIONS (2)
  - Haemoglobin decreased [None]
  - Fatigue [None]

NARRATIVE: CASE EVENT DATE: 20150523
